FAERS Safety Report 7465390-4 (Version None)
Quarter: 2011Q2

REPORT INFORMATION
  Report Type: 
  Country: None (occurrence: None)
  Receive Date: 20110509
  Receipt Date: 20110506
  Transmission Date: 20111010
  Serious: Yes (Death)
  Sender: FDA-Public Use
  Company Number: DK-ABBOTT-11P-044-0720550-00

PATIENT
  Sex: Male

DRUGS (3)
  1. HUMIRA [Suspect]
     Indication: PSORIATIC ARTHROPATHY
     Dates: start: 20070425, end: 20090629
  2. METHOTREXATE [Concomitant]
     Indication: PRODUCT USED FOR UNKNOWN INDICATION
     Dosage: UNKNOWN MAH
     Route: 048
     Dates: start: 20070425, end: 20070717
  3. METHOTREXATE [Concomitant]
     Route: 048
     Dates: start: 20071008, end: 20110108

REACTIONS (2)
  - SEPSIS [None]
  - CHOLANGITIS [None]
